FAERS Safety Report 20369092 (Version 1)
Quarter: 2022Q1

REPORT INFORMATION
  Report Type: Spontaneous
  Country: US (occurrence: US)
  Receive Date: 20220124
  Receipt Date: 20220124
  Transmission Date: 20220424
  Serious: No
  Sender: FDA-Public Use
  Company Number: US-NAPO PHARMACEUTICALS-2021US004276

PATIENT
  Sex: Male

DRUGS (1)
  1. MYTESI [Suspect]
     Active Substance: CROFELEMER
     Indication: HIV infection
     Dosage: 125 MG, BID
     Route: 048
     Dates: start: 20210122

REACTIONS (2)
  - Flatulence [Unknown]
  - Off label use [Unknown]
